FAERS Safety Report 8210573-9 (Version None)
Quarter: 2012Q1

REPORT INFORMATION
  Report Type: 
  Country: None (occurrence: None)
  Receive Date: 20120314
  Receipt Date: 20111109
  Transmission Date: 20120608
  Serious: No
  Sender: FDA-Public Use
  Company Number: US-ASTRAZENECA-2010SE42845

PATIENT
  Age: 70 Year
  Sex: Female

DRUGS (2)
  1. TOPROL-XL [Suspect]
     Route: 048
  2. TOPROL-XL [Suspect]
     Route: 048

REACTIONS (7)
  - MALAISE [None]
  - HEARING IMPAIRED [None]
  - DIABETES MELLITUS [None]
  - CARDIAC DISORDER [None]
  - HEART RATE DECREASED [None]
  - BRONCHITIS [None]
  - NASOPHARYNGITIS [None]
